FAERS Safety Report 9924255 (Version 1)
Quarter: 2014Q1

REPORT INFORMATION
  Report Type: Spontaneous
  Country: US (occurrence: US)
  Receive Date: 20140226
  Receipt Date: 20140226
  Transmission Date: 20141002
  Serious: Yes (Hospitalization, Other)
  Sender: FDA-Public Use
  Company Number: US-AMGEN-USASP2014013610

PATIENT
  Age: 49 Year
  Sex: Female
  Weight: 104.31 kg

DRUGS (2)
  1. ENBREL [Suspect]
     Indication: PRODUCT USED FOR UNKNOWN INDICATION
     Dosage: 50 MG, 2 TIMES/WK
     Route: 058
     Dates: start: 20131201
  2. BLACK COHOSH                       /01456801/ [Concomitant]
     Dosage: UNK

REACTIONS (1)
  - Cellulitis [Unknown]
